FAERS Safety Report 7620386-4 (Version None)
Quarter: 2011Q3

REPORT INFORMATION
  Report Type: 
  Country: None (occurrence: None)
  Receive Date: 20110718
  Receipt Date: 20110718
  Transmission Date: 20111222
  Serious: Yes (Other)
  Sender: FDA-Public Use
  Company Number: None

PATIENT
  Age: 59 Year
  Sex: Female
  Weight: 103.41 kg

DRUGS (1)
  1. GABAPENTIN [Suspect]
     Indication: NEUROPATHY PERIPHERAL
     Dosage: 2 AM, 1 MID-DAY, 2 BEDTIME
     Route: 048
     Dates: start: 20110612, end: 20110620

REACTIONS (5)
  - FEELING ABNORMAL [None]
  - PAIN IN EXTREMITY [None]
  - GAIT DISTURBANCE [None]
  - DRUG INEFFECTIVE [None]
  - PRODUCT SUBSTITUTION ISSUE [None]
